FAERS Safety Report 8048594-1 (Version None)
Quarter: 2011Q4

REPORT INFORMATION
  Report Type: 
  Country: None (occurrence: None)
  Receive Date: 20111209
  Receipt Date: 20111007
  Transmission Date: 20120403
  Serious: No
  Sender: FDA-Public Use
  Company Number: 2011SP047745

PATIENT
  Age: 53 Year
  Sex: Female

DRUGS (3)
  1. VICTRELIS [Suspect]
     Indication: HEPATITIS C
     Dosage: 800 MG; TID;PO
     Route: 048
     Dates: start: 20110901
  2. PEG-INTRON [Suspect]
     Indication: PRODUCT USED FOR UNKNOWN INDICATION
  3. REBETOL [Suspect]
     Indication: PRODUCT USED FOR UNKNOWN INDICATION

REACTIONS (1)
  - RASH [None]
